FAERS Safety Report 5606346-3 (Version None)
Quarter: 2008Q1

REPORT INFORMATION
  Report Type: 
  Country: None (occurrence: None)
  Receive Date: 20080129
  Receipt Date: 20070713
  Transmission Date: 20080703
  Serious: No
  Sender: FDA-Public Use
  Company Number: A0664004A

PATIENT
  Age: 70 Year
  Sex: Female

DRUGS (6)
  1. BUPROPION HYDROCHLORIDE [Suspect]
     Route: 048
     Dates: start: 20070611, end: 20070625
  2. EYE MEDICATION [Concomitant]
     Indication: GLAUCOMA
  3. SIMVASTATIN [Concomitant]
  4. ATENOLOL [Concomitant]
  5. UNKNOWN MEDICATION [Concomitant]
     Route: 055
  6. INHALER [Concomitant]

REACTIONS (3)
  - DRUG INEFFECTIVE [None]
  - THERAPEUTIC RESPONSE UNEXPECTED [None]
  - VISUAL DISTURBANCE [None]
